FAERS Safety Report 16418794 (Version 1)
Quarter: 2019Q2

REPORT INFORMATION
  Report Type: Spontaneous
  Country: CA (occurrence: CA)
  Receive Date: 20190612
  Receipt Date: 20190612
  Transmission Date: 20190711
  Serious: Yes (Other)
  Sender: FDA-Public Use
  Company Number: CA-AUROBINDO-AUR-APL-2019-032626

PATIENT

DRUGS (1)
  1. FLUOXETINE [Suspect]
     Active Substance: FLUOXETINE HYDROCHLORIDE
     Indication: ANXIETY
     Dosage: 20 MILLIGRAM, DAILY
     Route: 065

REACTIONS (8)
  - Chest pain [Unknown]
  - Insomnia [Unknown]
  - Anxiety [Unknown]
  - Thinking abnormal [Unknown]
  - Agitation [Unknown]
  - Suicidal ideation [Unknown]
  - Restlessness [Unknown]
  - Dizziness [Unknown]
